FAERS Safety Report 9086365 (Version 1)
Quarter: 2013Q1

REPORT INFORMATION
  Report Type: Spontaneous
  Country: US (occurrence: US)
  Receive Date: 20130131
  Receipt Date: 20130131
  Transmission Date: 20140127
  Serious: No
  Sender: FDA-Public Use
  Company Number: US-ABBOTT-12P-163-0997553-00

PATIENT
  Sex: 0

DRUGS (1)
  1. HUMIRA [Suspect]
     Indication: PRODUCT USED FOR UNKNOWN INDICATION
     Route: 050

REACTIONS (9)
  - Hypersensitivity [Unknown]
  - Epistaxis [Unknown]
  - Headache [Unknown]
  - Skin disorder [Unknown]
  - Impaired healing [Unknown]
  - Migraine [Unknown]
  - Visual impairment [Unknown]
  - Psoriasis [Unknown]
  - Skin discolouration [Unknown]
